FAERS Safety Report 4344758-9 (Version None)
Quarter: 2004Q2

REPORT INFORMATION
  Report Type: 
  Country: None (occurrence: None)
  Receive Date: 20040423
  Receipt Date: 20040304
  Transmission Date: 20050107
  Serious: Yes (Death, Other)
  Sender: FDA-Public Use
  Company Number: PHEH2004US02679

PATIENT
  Age: 38 Year
  Sex: Male

DRUGS (8)
  1. CLOZARIL [Suspect]
     Indication: SCHIZOPHRENIA
     Dosage: UNK, UNK
     Route: 048
  2. CELEXA [Suspect]
     Dosage: 40 MG, QD
     Route: 048
  3. ATENOLOL [Concomitant]
  4. PREVACID [Concomitant]
  5. CARDURA [Concomitant]
  6. REGLAN                                  /USA/ [Concomitant]
  7. ZOCOR [Concomitant]
  8. ANAESTHETICS, LOCAL [Concomitant]

REACTIONS (7)
  - DRUG INTERACTION [None]
  - DRUG LEVEL INCREASED [None]
  - PHARYNGEAL RECONSTRUCTION [None]
  - SLEEP APNOEA SYNDROME [None]
  - SUDDEN DEATH [None]
  - UVULOPLASTY [None]
  - VENTRICULAR HYPERTROPHY [None]
